FAERS Safety Report 18790495 (Version 4)
Quarter: 2021Q3

REPORT INFORMATION
  Report Type: Spontaneous
  Country: US (occurrence: US)
  Receive Date: 20210126
  Receipt Date: 20210714
  Transmission Date: 20211014
  Serious: Yes (Other)
  Sender: FDA-Public Use
  Company Number: US-PFIZER INC-2021055467

PATIENT
  Age: 57 Year
  Sex: Female
  Weight: 68.03 kg

DRUGS (8)
  1. METFORMIN ER [Concomitant]
     Active Substance: METFORMIN HYDROCHLORIDE
     Dosage: UNK
  2. NAPROXEN [NAPROXEN SODIUM] [Concomitant]
     Active Substance: NAPROXEN SODIUM
     Dosage: 250 MG
  3. LETROZOLE. [Concomitant]
     Active Substance: LETROZOLE
     Dosage: 2.5 MG
     Route: 048
  4. IBRANCE [Suspect]
     Active Substance: PALBOCICLIB
     Indication: BREAST CANCER FEMALE
     Dosage: 125 MG, CYCLIC (DAILY THEN HOLD FOR 7 DAYS)
     Route: 048
     Dates: start: 20210108
  5. IBRANCE [Suspect]
     Active Substance: PALBOCICLIB
     Dosage: 125 MG, CYCLIC (DAILY THEN HOLD FOR 7 DAYS)
     Route: 048
     Dates: start: 20210108
  6. IBRANCE [Suspect]
     Active Substance: PALBOCICLIB
     Dosage: 125 MG, CYCLIC (DAILY THEN HOLD FOR 7 DAYS)
     Route: 048
     Dates: start: 20210108
  7. CALCIUM [Concomitant]
     Active Substance: CALCIUM
     Dosage: UNK (500(1250) TAB CHEW)
     Route: 048
  8. JANUVIA [Concomitant]
     Active Substance: SITAGLIPTIN PHOSPHATE
     Dosage: UNK

REACTIONS (5)
  - Subcutaneous abscess [Unknown]
  - Joint range of motion decreased [Unknown]
  - Arthralgia [Unknown]
  - Nausea [Recovered/Resolved]
  - Dizziness [Recovered/Resolved]

NARRATIVE: CASE EVENT DATE: 202101
